FAERS Safety Report 4393814-8 (Version None)
Quarter: 2004Q3

REPORT INFORMATION
  Report Type: 
  Country: None (occurrence: None)
  Receive Date: 20040707
  Receipt Date: 20040628
  Transmission Date: 20050211
  Serious: Yes (Death, Hospitalization)
  Sender: FDA-Public Use
  Company Number: HQWYE124427MAY04

PATIENT
  Age: 88 Year
  Sex: Male

DRUGS (6)
  1. OMEGACIN (BIAPENEM, INJECTION) [Concomitant]
     Indication: PNEUMONIA BACTERIAL
     Dosage: 0.3 G 2X PER 1 DAY INTRAVENOUS DRIP
     Route: 041
     Dates: start: 20040116, end: 20040121
  2. MINOCYCLINE HCL [Suspect]
     Indication: PNEUMONIA
     Dosage: 200 MG DAILY INTRAVENOUS DRIP
     Route: 041
     Dates: start: 20040107, end: 20040125
  3. DIFLUCAN [Concomitant]
  4. FAMOTIDINE [Concomitant]
  5. LASIX [Concomitant]
  6. PREDNISOLONE [Concomitant]

REACTIONS (6)
  - ALANINE AMINOTRANSFERASE INCREASED [None]
  - ASPARTATE AMINOTRANSFERASE INCREASED [None]
  - BLOOD ALKALINE PHOSPHATASE INCREASED [None]
  - GAMMA-GLUTAMYLTRANSFERASE INCREASED [None]
  - HEPATIC FUNCTION ABNORMAL [None]
  - RESPIRATORY FAILURE [None]
